FAERS Safety Report 9353547 (Version 1)
Quarter: 2013Q2

REPORT INFORMATION
  Report Type: Spontaneous
  Country: US (occurrence: None)
  Receive Date: 20130617
  Receipt Date: 20130617
  Transmission Date: 20140414
  Serious: No
  Sender: FDA-Public Use
  Company Number: None

PATIENT
  Age: 25 Year
  Sex: Female
  Weight: 70.5 kg

DRUGS (18)
  1. EGRIFTA [Suspect]
     Indication: LIPODYSTROPHY ACQUIRED
     Route: 058
     Dates: start: 20110329, end: 20130524
  2. LIPITOR [Concomitant]
  3. GEODON [Concomitant]
  4. COGENTIN [Concomitant]
  5. INTELENCE [Concomitant]
  6. LAMOTRIGINE [Concomitant]
  7. MIRTAZAPINE [Concomitant]
  8. MONTELUKAST [Concomitant]
  9. OXCARBAZEPINE [Concomitant]
  10. PRAZOSIN [Concomitant]
  11. RALTEGRAVIR [Concomitant]
  12. SAPHRIS [Concomitant]
  13. SELZENTRY [Concomitant]
  14. TRAZODONE [Concomitant]
  15. TRUVADA [Concomitant]
  16. ABILIFY [Concomitant]
  17. WELLBUTRIN [Concomitant]
  18. NORVIR [Concomitant]

REACTIONS (3)
  - Psychotic disorder [None]
  - Pituitary hyperplasia [None]
  - Blood prolactin increased [None]
